FAERS Safety Report 10677126 (Version 1)
Quarter: 2014Q4

REPORT INFORMATION
  Report Type: Spontaneous
  Country: US (occurrence: US)
  Receive Date: 20141226
  Receipt Date: 20141226
  Transmission Date: 20150529
  Serious: Yes (Other)
  Sender: FDA-Public Use
  Company Number: US-BAYER-2014-188301

PATIENT
  Age: 41 Year
  Sex: Female

DRUGS (3)
  1. CIPRO [Suspect]
     Active Substance: CIPROFLOXACIN HYDROCHLORIDE
     Indication: URINARY TRACT INFECTION
     Dosage: 500 MG, BID
     Dates: start: 201411, end: 201411
  2. MIRENA [Suspect]
     Active Substance: LEVONORGESTREL
     Indication: CONTRACEPTION
     Dosage: 20 MCG/24HR, CONT
     Route: 015
     Dates: start: 20140124, end: 20141211
  3. MIRENA [Suspect]
     Active Substance: LEVONORGESTREL
     Indication: DYSMENORRHOEA

REACTIONS (16)
  - Device expulsion [None]
  - Escherichia urinary tract infection [Not Recovered/Not Resolved]
  - Vulvovaginal erythema [Not Recovered/Not Resolved]
  - Vulvovaginal discomfort [Not Recovered/Not Resolved]
  - Feeling abnormal [Not Recovered/Not Resolved]
  - Medication error [None]
  - Pelvic inflammatory disease [Not Recovered/Not Resolved]
  - Escherichia urinary tract infection [Recovered/Resolved]
  - Procedural pain [Not Recovered/Not Resolved]
  - Pain [Not Recovered/Not Resolved]
  - Menorrhagia [Not Recovered/Not Resolved]
  - Dysmenorrhoea [None]
  - Pollakiuria [Recovered/Resolved]
  - Uterine fibrosis [Not Recovered/Not Resolved]
  - Dysuria [Recovered/Resolved]
  - Vulvovaginal mycotic infection [Not Recovered/Not Resolved]

NARRATIVE: CASE EVENT DATE: 2014
